FAERS Safety Report 14921160 (Version 1)
Quarter: 2018Q2

REPORT INFORMATION
  Report Type: Report from Study
  Country: US (occurrence: US)
  Receive Date: 20180521
  Receipt Date: 20180521
  Transmission Date: 20180711
  Serious: Yes (Other)
  Sender: FDA-Public Use
  Company Number: US-BEH-2018090761

PATIENT
  Age: 54 Year
  Sex: Female

DRUGS (1)
  1. HAEGARDA [Suspect]
     Active Substance: HUMAN C1-ESTERASE INHIBITOR
     Indication: HEREDITARY ANGIOEDEMA
     Route: 065

REACTIONS (5)
  - Abdominal pain upper [Unknown]
  - Asthenia [Unknown]
  - Bedridden [Unknown]
  - Hereditary angioedema [Unknown]
  - Irritability [Unknown]

NARRATIVE: CASE EVENT DATE: 20180215
